FAERS Safety Report 25427960 (Version 1)
Quarter: 2025Q2

REPORT INFORMATION
  Report Type: Spontaneous
  Country: US (occurrence: None)
  Receive Date: 20250611
  Receipt Date: 20250611
  Transmission Date: 20250716
  Serious: Yes (Hospitalization)
  Sender: FDA-CTU
  Company Number: None

PATIENT
  Age: 74 Year
  Sex: Male
  Weight: 67.4 kg

DRUGS (35)
  1. NIVOLUMAB [Suspect]
     Active Substance: NIVOLUMAB
     Indication: Renal cell carcinoma
     Route: 042
  2. CABOZANTINIB [Suspect]
     Active Substance: CABOZANTINIB
     Indication: Renal cell carcinoma
     Dosage: FREQUENCY : DAILY;?
     Route: 048
     Dates: start: 20231215, end: 20240724
  3. XARELTO [Suspect]
     Active Substance: RIVAROXABAN
  4. PROCHLORPERAZINE [Concomitant]
     Active Substance: PROCHLORPERAZINE
     Dates: start: 20231215
  5. ONDANSETRON [Concomitant]
     Active Substance: ONDANSETRON
     Dates: start: 20231215
  6. OXYBUTYNIN CHLORIDE [Concomitant]
     Active Substance: OXYBUTYNIN CHLORIDE
     Dates: start: 202307
  7. PRAVASTATIN [Concomitant]
     Active Substance: PRAVASTATIN
     Dates: start: 202001
  8. METOPROLOL SUCCINATE [Concomitant]
     Active Substance: METOPROLOL SUCCINATE
     Dates: start: 201805
  9. LOSARTAN [Concomitant]
     Active Substance: LOSARTAN
     Dates: start: 201805
  10. FINASTERIDE [Concomitant]
     Active Substance: FINASTERIDE
     Dates: start: 201805
  11. RIVAROXABAN [Concomitant]
     Active Substance: RIVAROXABAN
     Dates: start: 201805
  12. CHOLECALCIFEROL [Concomitant]
     Active Substance: CHOLECALCIFEROL
     Dates: start: 202101
  13. LUTEIN [Concomitant]
     Active Substance: LUTEIN
     Dates: start: 202101
  14. ALIGN [Concomitant]
     Active Substance: BIFIDOBACTERIUM LONGUM SUBSP. INFANTIS
     Dates: start: 202102
  15. TYLENOL [Concomitant]
     Active Substance: ACETAMINOPHEN
     Dates: start: 201801
  16. MELATONIN [Concomitant]
     Active Substance: MELATONIN
     Dates: start: 202209
  17. LOPERAMIDE [Concomitant]
     Active Substance: LOPERAMIDE
     Dates: start: 20231218
  18. CERA Ve Lotion [Concomitant]
     Route: 061
     Dates: start: 20231218
  19. CORICIDINE HBP [Concomitant]
     Route: 048
     Dates: start: 20240116
  20. PREDNISONE [Concomitant]
     Active Substance: PREDNISONE
     Dates: start: 20240129
  21. PREDNISONE [Concomitant]
     Active Substance: PREDNISONE
     Dates: start: 20240206
  22. PREDNISONE [Concomitant]
     Active Substance: PREDNISONE
     Dates: start: 20240215
  23. PREDNISONE [Concomitant]
     Active Substance: PREDNISONE
     Dates: start: 20240228
  24. IMODIUM [Concomitant]
     Active Substance: LOPERAMIDE HYDROCHLORIDE
     Dates: start: 20240329
  25. UREA [Concomitant]
     Active Substance: UREA
     Route: 061
  26. SYNTHROID [Concomitant]
     Active Substance: LEVOTHYROXINE SODIUM
     Dates: start: 20240502
  27. SYNTHROID [Concomitant]
     Active Substance: LEVOTHYROXINE SODIUM
     Dates: start: 20240628
  28. ACETAMINOPHEN [Concomitant]
     Active Substance: ACETAMINOPHEN
     Dates: start: 20250401
  29. LACTATED RINGERS SOLUTION [Concomitant]
     Active Substance: CALCIUM CHLORIDE\POTASSIUM CHLORIDE\SODIUM CHLORIDE\SODIUM LACTATE
     Dates: start: 20250401
  30. ZOSYN [Concomitant]
     Active Substance: PIPERACILLIN SODIUM\TAZOBACTAM SODIUM
     Dates: start: 20250401
  31. SODIUM CHLORIDE [Concomitant]
     Active Substance: SODIUM CHLORIDE
  32. FENTANYL [Concomitant]
     Active Substance: FENTANYL
  33. LACTATED RINGERS SOLUTION [Concomitant]
     Active Substance: CALCIUM CHLORIDE\POTASSIUM CHLORIDE\SODIUM CHLORIDE\SODIUM LACTATE
     Dates: start: 20250610
  34. ZYVOX [Concomitant]
     Active Substance: LINEZOLID
     Dates: start: 20250610
  35. ZOSYN [Concomitant]
     Active Substance: PIPERACILLIN SODIUM\TAZOBACTAM SODIUM
     Dates: start: 20250610

REACTIONS (4)
  - Abdominal abscess [None]
  - Abdominal adhesions [None]
  - Omentectomy [None]
  - Colostomy [None]

NARRATIVE: CASE EVENT DATE: 20250610
